FAERS Safety Report 22098747 (Version 1)
Quarter: 2023Q1

REPORT INFORMATION
  Report Type: Spontaneous
  Country: US (occurrence: US)
  Receive Date: 20230315
  Receipt Date: 20230315
  Transmission Date: 20230418
  Serious: No
  Sender: FDA-Public Use
  Company Number: US-TEVA-2023-US-2861697

PATIENT
  Age: 74 Year
  Sex: Female

DRUGS (2)
  1. CARBAMAZEPINE [Suspect]
     Active Substance: CARBAMAZEPINE
     Indication: Depression
     Dosage: 800 MILLIGRAM DAILY; (10 YEARS)?FOUR TABLETS DAILY,TWO IN THE MORNING AND TWO IN THE EVENING
     Route: 065
     Dates: start: 2013
  2. TEGRETOL [Concomitant]
     Active Substance: CARBAMAZEPINE
     Indication: Product used for unknown indication
     Route: 065

REACTIONS (4)
  - White blood cell count decreased [Unknown]
  - Nasopharyngitis [Recovered/Resolved]
  - Product use in unapproved indication [Unknown]
  - Product identification number issue [Unknown]

NARRATIVE: CASE EVENT DATE: 20230101
